FAERS Safety Report 16965805 (Version 1)
Quarter: 2019Q4

REPORT INFORMATION
  Report Type: Spontaneous
  Country: US (occurrence: US)
  Receive Date: 20191028
  Receipt Date: 20191028
  Transmission Date: 20200122
  Serious: No
  Sender: FDA-Public Use
  Company Number: US-BAUSCH-BL-2019-059193

PATIENT
  Sex: Female

DRUGS (2)
  1. LUMIFY [Suspect]
     Active Substance: BRIMONIDINE TARTRATE
     Indication: OCULAR HYPERAEMIA
     Dosage: APPROXIMATELY 2 YEARS AGO, ONCE DAILY AS NEEDED IN BOTH EYES
     Route: 047
  2. RETIN-A [Concomitant]
     Active Substance: TRETINOIN
     Indication: PRODUCT USED FOR UNKNOWN INDICATION

REACTIONS (3)
  - Product residue present [Unknown]
  - Accidental exposure to product [Unknown]
  - Asthenopia [Recovered/Resolved]
